FAERS Safety Report 7193730-2 (Version None)
Quarter: 2010Q4

REPORT INFORMATION
  Report Type: 
  Country: None (occurrence: None)
  Receive Date: 20101223
  Receipt Date: 20100909
  Transmission Date: 20110411
  Serious: No
  Sender: FDA-Public Use
  Company Number: US-AMGEN-KDL437393

PATIENT

DRUGS (2)
  1. ENBREL [Suspect]
     Indication: PSORIASIS
     Dosage: 50 MG, QWK
     Route: 058
     Dates: start: 20100902
  2. ENBREL [Suspect]
     Indication: PSORIATIC ARTHROPATHY

REACTIONS (7)
  - ARTHRALGIA [None]
  - BACK PAIN [None]
  - CHEILITIS [None]
  - GLOSSODYNIA [None]
  - PAIN IN EXTREMITY [None]
  - PSORIASIS [None]
  - TONGUE DISCOLOURATION [None]
